FAERS Safety Report 21300203 (Version 1)
Quarter: 2022Q3

REPORT INFORMATION
  Report Type: Spontaneous
  Country: US (occurrence: None)
  Receive Date: 20220906
  Receipt Date: 20220906
  Transmission Date: 20221026
  Serious: No
  Sender: FDA-Public Use
  Company Number: None

PATIENT
  Sex: Female

DRUGS (1)
  1. DIMETHYL FUMARATE [Suspect]
     Active Substance: DIMETHYL FUMARATE
     Dosage: FREQUENCY : TWICE A DAY;?
     Route: 048

REACTIONS (14)
  - Pneumonia [None]
  - Dyspnoea [None]
  - Heart rate increased [None]
  - Blood glucose increased [None]
  - Blood potassium decreased [None]
  - Blood potassium increased [None]
  - Rhinorrhoea [None]
  - Decreased appetite [None]
  - Diarrhoea [None]
  - Muscle spasms [None]
  - Pain in extremity [None]
  - Cholelithiasis [None]
  - Renal cyst [None]
  - Uveitis [None]
